FAERS Safety Report 4408886-1 (Version None)
Quarter: 2004Q3

REPORT INFORMATION
  Report Type: 
  Country: None (occurrence: None)
  Receive Date: 20040727
  Receipt Date: 20040716
  Transmission Date: 20050211
  Serious: Yes (Other)
  Sender: FDA-Public Use
  Company Number: JP-BRISTOL-MYERS SQUIBB COMPANY-12642724

PATIENT
  Age: 21 Year
  Sex: Male

DRUGS (3)
  1. BLEOMYCIN [Suspect]
     Indication: TESTIS CANCER
     Route: 042
  2. CISPLATIN [Suspect]
     Indication: TESTIS CANCER
     Route: 042
  3. ETOPOSIDE [Suspect]
     Indication: TESTIS CANCER
     Route: 042

REACTIONS (1)
  - PULMONARY INFARCTION [None]
